FAERS Safety Report 8273943-9 (Version None)
Quarter: 2012Q2

REPORT INFORMATION
  Report Type: 
  Country: None (occurrence: None)
  Receive Date: 20120411
  Receipt Date: 20120406
  Transmission Date: 20120825
  Serious: Yes (Other)
  Sender: FDA-Public Use
  Company Number: US-ROXANE LABORATORIES, INC.-2012-RO-01003RO

PATIENT

DRUGS (2)
  1. LITHIUM CARBONATE [Suspect]
     Indication: BIPOLAR I DISORDER
  2. ARIPIPRAZOLE [Suspect]
     Indication: BIPOLAR I DISORDER

REACTIONS (1)
  - TARDIVE DYSKINESIA [None]
